FAERS Safety Report 7868389-9 (Version None)
Quarter: 2011Q4

REPORT INFORMATION
  Report Type: 
  Country: None (occurrence: None)
  Receive Date: 20111028
  Receipt Date: 20101216
  Transmission Date: 20120403
  Serious: Yes (Other)
  Sender: FDA-Public Use
  Company Number: US-AMGEN-KDL301355

PATIENT
  Age: 11 Year
  Sex: Female

DRUGS (2)
  1. METHOTREXATE [Concomitant]
     Dosage: 150 MG, QWK
  2. ENBREL [Suspect]
     Indication: JUVENILE ARTHRITIS
     Dosage: 25 MG, 2 TIMES/WK
     Route: 058
     Dates: start: 20070510

REACTIONS (8)
  - CHILLS [None]
  - INJECTION SITE PAIN [None]
  - JUVENILE ARTHRITIS [None]
  - RED BLOOD CELL SEDIMENTATION RATE INCREASED [None]
  - VIRAL INFECTION [None]
  - INJECTION SITE ANAESTHESIA [None]
  - ANAEMIA [None]
  - C-REACTIVE PROTEIN INCREASED [None]
